FAERS Safety Report 9886927 (Version 1)
Quarter: 2014Q1

REPORT INFORMATION
  Report Type: Report from Study
  Country: US (occurrence: US)
  Receive Date: 20140211
  Receipt Date: 20140211
  Transmission Date: 20141002
  Serious: Yes (Death)
  Sender: FDA-Public Use
  Company Number: US-ROCHE-1323029

PATIENT
  Sex: Male

DRUGS (9)
  1. AVASTIN [Suspect]
     Indication: RECTOSIGMOID CANCER
     Route: 065
  2. CAMPTOSAR [Concomitant]
     Route: 065
  3. LIPITOR [Concomitant]
     Route: 065
  4. ZOFRAN [Concomitant]
     Route: 065
  5. ATROPINE [Concomitant]
     Route: 065
  6. DECADRON [Concomitant]
     Route: 065
  7. FOLINIC ACID [Concomitant]
  8. 5-FU [Concomitant]
  9. OXALIPLATIN [Concomitant]

REACTIONS (2)
  - Death [Fatal]
  - Haematocrit decreased [Unknown]
